FAERS Safety Report 5693021-2 (Version None)
Quarter: 2008Q2

REPORT INFORMATION
  Report Type: 
  Country: None (occurrence: None)
  Receive Date: 20080403
  Receipt Date: 20080326
  Transmission Date: 20081010
  Serious: Yes (Other)
  Sender: FDA-Public Use
  Company Number: US-JNJFOC-20080306161

PATIENT
  Sex: Female
  Weight: 45.36 kg

DRUGS (2)
  1. REMICADE [Suspect]
     Indication: COLITIS ULCERATIVE
     Route: 042
  2. COLANOL [Concomitant]
     Indication: COLITIS ULCERATIVE

REACTIONS (3)
  - ABDOMINAL PAIN [None]
  - COLECTOMY TOTAL [None]
  - RECTAL HAEMORRHAGE [None]
